FAERS Safety Report 6911714-3 (Version None)
Quarter: 2010Q3

REPORT INFORMATION
  Report Type: 
  Country: None (occurrence: None)
  Receive Date: 20100806
  Receipt Date: 20100727
  Transmission Date: 20110219
  Serious: Yes (Hospitalization)
  Sender: FDA-Public Use
  Company Number: DE-ABBOTT-09P-062-0613670-00

PATIENT
  Sex: Female
  Weight: 98 kg

DRUGS (9)
  1. HUMIRA [Suspect]
     Indication: RHEUMATOID ARTHRITIS
     Route: 058
     Dates: start: 20090501, end: 20090901
  2. PREDNISOLONE [Concomitant]
     Indication: RHEUMATOID ARTHRITIS
  3. METFORMIN HCL [Concomitant]
     Indication: DIABETES MELLITUS
  4. ACETYLSALICYLIC ACID SRT [Concomitant]
     Indication: PRODUCT USED FOR UNKNOWN INDICATION
  5. ALLOPURINOL [Concomitant]
     Indication: HYPERURICAEMIA
  6. METOPROLOL [Concomitant]
     Indication: HYPERTENSION
  7. METOPROLOL [Concomitant]
     Indication: CORONARY ARTERY DISEASE
  8. RITUXIMAB [Concomitant]
     Indication: RHEUMATOID ARTHRITIS
     Dates: start: 20091013
  9. ETANERCEPT [Concomitant]
     Indication: RHEUMATOID ARTHRITIS
     Dates: start: 20090201, end: 20090501

REACTIONS (8)
  - ARTHROPATHY [None]
  - HEPATIC ENZYME INCREASED [None]
  - HEPATIC STEATOSIS [None]
  - HEPATOMEGALY [None]
  - OEDEMA PERIPHERAL [None]
  - OSTEOARTHRITIS [None]
  - SLEEP APNOEA SYNDROME [None]
  - VENTRICULAR EXTRASYSTOLES [None]
